FAERS Safety Report 11519889 (Version 4)
Quarter: 2015Q4

REPORT INFORMATION
  Report Type: Report from Study
  Country: FR (occurrence: FR)
  Receive Date: 20150918
  Receipt Date: 20151211
  Transmission Date: 20160304
  Serious: Yes (Death, Hospitalization, Other)
  Sender: FDA-Public Use
  Company Number: FR-BRISTOL-MYERS SQUIBB COMPANY-BMS-2015-061497

PATIENT
  Age: 62 Year
  Sex: Male
  Weight: 63 kg

DRUGS (2)
  1. NIVOLUMAB [Suspect]
     Active Substance: NIVOLUMAB
     Indication: PRODUCT USED FOR UNKNOWN INDICATION
     Dosage: 182 MG, UNK
     Route: 065
     Dates: start: 20150713
  2. NIVOLUMAB [Suspect]
     Active Substance: NIVOLUMAB
     Dosage: UNK
     Route: 065
     Dates: start: 20150731, end: 20150731

REACTIONS (7)
  - General physical health deterioration [Unknown]
  - Chills [Unknown]
  - Asthenia [Unknown]
  - Device related infection [Fatal]
  - Central venous catheter removal [Unknown]
  - Shock [Unknown]
  - Septic shock [Fatal]
